FAERS Safety Report 13091017 (Version 4)
Quarter: 2017Q1

REPORT INFORMATION
  Report Type: Spontaneous
  Country: IT (occurrence: IT)
  Receive Date: 20170106
  Receipt Date: 20170125
  Transmission Date: 20170428
  Serious: Yes (Other)
  Sender: FDA-Public Use
  Company Number: IT-ACCORD-047209

PATIENT
  Age: 65 Year
  Sex: Male
  Weight: 60 kg

DRUGS (5)
  1. OXALIPLATIN. [Suspect]
     Active Substance: OXALIPLATIN
     Indication: ADENOCARCINOMA OF COLON
     Route: 042
     Dates: start: 20160721
  2. OMNIC [Concomitant]
     Active Substance: TAMSULOSIN HYDROCHLORIDE
  3. VIAGRA [Concomitant]
     Active Substance: SILDENAFIL CITRATE
  4. LEDERFOLIN [Concomitant]
     Active Substance: LEUCOVORIN CALCIUM
     Dosage: 335 MG
     Route: 042
     Dates: start: 20160721, end: 20161207
  5. FLUOROURACIL. [Suspect]
     Active Substance: FLUOROURACIL
     Indication: ADENOCARCINOMA OF COLON
     Dosage: ALSO RECEIVED 4032 MG CYCLICAL INTRAVENOUS
     Route: 040
     Dates: start: 20160721

REACTIONS (4)
  - Hypertransaminasaemia [Recovering/Resolving]
  - Paraesthesia [Not Recovered/Not Resolved]
  - Neutropenia [Recovering/Resolving]
  - Thrombocytopenia [Not Recovered/Not Resolved]

NARRATIVE: CASE EVENT DATE: 20160823
